FAERS Safety Report 8174462-0 (Version None)
Quarter: 2012Q1

REPORT INFORMATION
  Report Type: 
  Country: None (occurrence: None)
  Receive Date: 20120229
  Receipt Date: 20120221
  Transmission Date: 20120608
  Serious: Yes (Hospitalization)
  Sender: FDA-Public Use
  Company Number: US-ASTRAZENECA-2012SE11962

PATIENT
  Age: 55 Year
  Sex: Male
  Weight: 136.1 kg

DRUGS (8)
  1. CYMBALTA [Concomitant]
     Route: 048
  2. VASOTEC [Concomitant]
     Route: 048
  3. CRESTOR [Suspect]
     Indication: BLOOD CHOLESTEROL
     Route: 048
  4. FENTANYL [Concomitant]
     Route: 048
  5. LYRICA [Concomitant]
     Route: 048
  6. PERCOCET [Concomitant]
     Dosage: 10/325 MGS DAILY
     Route: 048
  7. OXYCODONE HCL [Concomitant]
     Route: 048
  8. ACETAMINOPHEN [Concomitant]
     Route: 048

REACTIONS (5)
  - DYSARTHRIA [None]
  - DRUG HYPERSENSITIVITY [None]
  - FALL [None]
  - HYPOTENSION [None]
  - LOWER LIMB FRACTURE [None]
